FAERS Safety Report 6748499-X (Version None)
Quarter: 2010Q2

REPORT INFORMATION
  Report Type: 
  Country: None (occurrence: None)
  Receive Date: 20100526
  Receipt Date: 20081008
  Transmission Date: 20101027
  Serious: No
  Sender: FDA-Public Use
  Company Number: 2008-00107

PATIENT
  Age: 21 Year
  Sex: Female
  Weight: 83.9154 kg

DRUGS (1)
  1. ZICAM COLD REMEDY GEL SWABS [Suspect]
     Indication: NASOPHARYNGITIS
     Dosage: BID X 3 DAYS

REACTIONS (2)
  - AGEUSIA [None]
  - ANOSMIA [None]
